FAERS Safety Report 19894642 (Version 1)
Quarter: 2021Q3

REPORT INFORMATION
  Report Type: Spontaneous
  Country: CH (occurrence: CH)
  Receive Date: 20210929
  Receipt Date: 20210929
  Transmission Date: 20211014
  Serious: Yes (Death)
  Sender: FDA-Public Use
  Company Number: CH-LUPIN PHARMACEUTICALS INC.-2021-18296

PATIENT
  Age: 76 Year
  Sex: Female

DRUGS (2)
  1. MORPHINE [Suspect]
     Active Substance: MORPHINE
     Indication: PRODUCT USED FOR UNKNOWN INDICATION
     Dosage: 50 MILLIGRAM (RECEIVED 4H BEFORE DEATH)
     Route: 058
  2. MORPHINE [Suspect]
     Active Substance: MORPHINE
     Dosage: 5 MILLIGRAM (RECEIVED 1.5H BEFORE DEATH)
     Route: 058

REACTIONS (1)
  - Toxicity to various agents [Fatal]
